FAERS Safety Report 5436709-0 (Version None)
Quarter: 2007Q3

REPORT INFORMATION
  Report Type: 
  Country: None (occurrence: None)
  Receive Date: 20070831
  Receipt Date: 20070820
  Transmission Date: 20080115
  Serious: Yes (Hospitalization)
  Sender: FDA-Public Use
  Company Number: FR-JNJFOC-20070804341

PATIENT
  Sex: Female

DRUGS (11)
  1. DUROGESIC [Suspect]
     Indication: PAIN
     Route: 062
  2. REMINYL [Suspect]
     Indication: DEMENTIA ALZHEIMER'S TYPE
     Route: 048
  3. LEVOTHYROXINE SODIUM [Concomitant]
     Indication: HYPOTHYROIDISM
     Route: 065
  4. MOCLAMINE [Concomitant]
     Route: 065
  5. MEMANTINE HCL [Concomitant]
     Indication: DEMENTIA ALZHEIMER'S TYPE
     Route: 065
  6. KARDEGIC [Concomitant]
     Route: 065
  7. VOGALENE [Concomitant]
     Route: 065
  8. FORLAX [Concomitant]
     Route: 065
  9. XANAX [Concomitant]
     Route: 065
  10. EUPANTOL [Concomitant]
     Route: 065
  11. ATARAX [Concomitant]
     Route: 065

REACTIONS (5)
  - ANOREXIA [None]
  - CONDITION AGGRAVATED [None]
  - DEHYDRATION [None]
  - DEMENTIA [None]
  - SOMNOLENCE [None]
